FAERS Safety Report 9629389 (Version 1)
Quarter: 2013Q4

REPORT INFORMATION
  Report Type: Spontaneous
  Country: US (occurrence: US)
  Receive Date: 20131017
  Receipt Date: 20131017
  Transmission Date: 20140711
  Serious: No
  Sender: FDA-Public Use
  Company Number: US-ASTRAZENECA-2013SE48134

PATIENT
  Age: 87 Year
  Sex: Female
  Weight: 56.7 kg

DRUGS (3)
  1. CRESTOR [Suspect]
     Route: 048
  2. LIPITOR [Suspect]
     Indication: BLOOD CHOLESTEROL ABNORMAL
     Route: 065
  3. LIPITOR [Suspect]
     Indication: OSTEOPOROSIS
     Route: 065

REACTIONS (5)
  - Glucose tolerance impaired [Unknown]
  - Blood pressure abnormal [Unknown]
  - Pain in extremity [Unknown]
  - Diabetes mellitus [Unknown]
  - Off label use [Unknown]
